FAERS Safety Report 9107290 (Version 1)
Quarter: 2013Q1

REPORT INFORMATION
  Report Type: Report from Study
  Country: US (occurrence: US)
  Receive Date: 20130221
  Receipt Date: 20130221
  Transmission Date: 20140127
  Serious: Yes (Hospitalization)
  Sender: FDA-Public Use
  Company Number: US-JNJFOC-20130208398

PATIENT
  Age: 80 Year
  Sex: Male

DRUGS (20)
  1. ACETAMINOPHEN [Suspect]
     Route: 065
  2. ACETAMINOPHEN [Suspect]
     Indication: PRODUCT USED FOR UNKNOWN INDICATION
     Route: 065
  3. POLYETHYLENE GLYCOL [Concomitant]
     Route: 065
  4. METOPROLOL [Concomitant]
     Route: 065
  5. PRILOSEC [Concomitant]
     Route: 065
  6. WARFARIN [Concomitant]
     Route: 065
  7. ASPIRIN [Concomitant]
     Route: 065
  8. ADVAIR DISKUS [Concomitant]
     Route: 065
  9. FLUTICASONE PROPIONATE [Concomitant]
     Route: 065
  10. PRAVASTATIN [Concomitant]
     Route: 065
  11. SENNA [Concomitant]
     Route: 065
  12. MUCINEX [Concomitant]
     Route: 065
  13. AMIODARONE [Concomitant]
     Route: 065
  14. FUROSEMIDE [Concomitant]
     Route: 065
  15. LIDODERM [Concomitant]
     Route: 065
  16. BUMETANIDE [Concomitant]
     Route: 065
  17. DOCUSATE SODIUM [Concomitant]
     Route: 065
  18. FLUTICASONE AND SALMETEROL [Concomitant]
     Route: 065
  19. GUAIFENESIN [Concomitant]
     Route: 065
  20. PANTOPRAZOLE [Concomitant]
     Route: 065

REACTIONS (3)
  - Fall [Unknown]
  - Oedema peripheral [Unknown]
  - Balance disorder [Unknown]
